FAERS Safety Report 22198669 (Version 2)
Quarter: 2023Q2

REPORT INFORMATION
  Report Type: Report from Study
  Country: JP (occurrence: JP)
  Receive Date: 20230411
  Receipt Date: 20230529
  Transmission Date: 20230722
  Serious: Yes (Death, Other)
  Sender: FDA-Public Use
  Company Number: JP-TAKEDA-2023TJP002344AA

PATIENT
  Age: 64 Year
  Sex: Male

DRUGS (11)
  1. NIVOLUMAB [Suspect]
     Active Substance: NIVOLUMAB
     Indication: Renal cancer recurrent
     Route: 041
     Dates: start: 20221013
  2. NIVOLUMAB [Suspect]
     Active Substance: NIVOLUMAB
     Route: 041
     Dates: start: 20230201, end: 20230201
  3. IPILIMUMAB [Suspect]
     Active Substance: IPILIMUMAB
     Indication: Renal cancer recurrent
     Dosage: UNK
     Route: 041
     Dates: start: 20221013, end: 20230111
  4. CABOZANTINIB [Suspect]
     Active Substance: CABOZANTINIB
     Indication: Renal cell carcinoma
     Dosage: 60 MG
     Route: 048
     Dates: start: 20230207, end: 20230216
  5. CORTRIL [Concomitant]
     Active Substance: HYDROCORTISONE
     Indication: Product used for unknown indication
     Dosage: 15 MILLIGRAM, BID
     Route: 048
     Dates: end: 20230217
  6. LEVOTHYROXINE SODIUM [Concomitant]
     Active Substance: LEVOTHYROXINE SODIUM
     Indication: Product used for unknown indication
     Dosage: 25 MICROGRAM, QD
     Route: 048
     Dates: end: 20230217
  7. CARVEDILOL [Concomitant]
     Active Substance: CARVEDILOL
     Indication: Product used for unknown indication
     Dosage: 10 MILLIGRAM, QD
     Route: 048
     Dates: end: 20230217
  8. ATORVASTATIN [Concomitant]
     Active Substance: ATORVASTATIN
     Indication: Product used for unknown indication
     Dosage: 10 MILLIGRAM, QD
     Route: 048
     Dates: end: 20230217
  9. EPINASTINE HYDROCHLORIDE [Concomitant]
     Active Substance: EPINASTINE HYDROCHLORIDE
     Indication: Product used for unknown indication
     Dosage: 20 MILLIGRAM, QD
     Route: 048
     Dates: end: 20230217
  10. NIFEDIPINE [Concomitant]
     Active Substance: NIFEDIPINE
     Indication: Product used for unknown indication
     Dosage: 10 MILLIGRAM, QD
     Route: 048
     Dates: end: 20230217
  11. LOSARTAN POTASSIUM [Concomitant]
     Active Substance: LOSARTAN POTASSIUM
     Indication: Product used for unknown indication
     Dosage: 50 MILLIGRAM, QD
     Route: 048
     Dates: end: 20230217

REACTIONS (3)
  - Stevens-Johnson syndrome [Fatal]
  - Toxic epidermal necrolysis [Fatal]
  - Hypopituitarism [Fatal]

NARRATIVE: CASE EVENT DATE: 20230217
